FAERS Safety Report 6378570-6 (Version None)
Quarter: 2009Q3

REPORT INFORMATION
  Report Type: 
  Country: None (occurrence: None)
  Receive Date: 20090928
  Receipt Date: 20090917
  Transmission Date: 20100115
  Serious: Yes (Other)
  Sender: FDA-Public Use
  Company Number: GB-JNJFOC-20090905548

PATIENT
  Sex: Female
  Weight: 125 kg

DRUGS (2)
  1. REMICADE [Suspect]
     Indication: PSORIATIC ARTHROPATHY
     Route: 042
  2. STEROIDS NOS [Suspect]
     Indication: PSORIATIC ARTHROPATHY

REACTIONS (1)
  - WEIGHT INCREASED [None]
